FAERS Safety Report 5478083-X (Version None)
Quarter: 2007Q4

REPORT INFORMATION
  Report Type: 
  Country: None (occurrence: None)
  Receive Date: 20071005
  Receipt Date: 20070926
  Transmission Date: 20080405
  Serious: Yes (Other)
  Sender: FDA-Public Use
  Company Number: JP-JNJFOC-20070905121

PATIENT
  Age: 72 Year
  Sex: Female

DRUGS (5)
  1. RISPERDAL [Suspect]
     Indication: DRUG USE FOR UNKNOWN INDICATION
     Route: 048
  2. VEGETAMIN-B [Concomitant]
     Route: 048
  3. ATARAX [Concomitant]
     Route: 048
  4. D-ALFA [Concomitant]
     Route: 048
  5. SYMMETREL [Concomitant]
     Route: 048

REACTIONS (2)
  - LIVER DISORDER [None]
  - SOMNOLENCE [None]
